FAERS Safety Report 5287487-X (Version None)
Quarter: 2007Q1

REPORT INFORMATION
  Report Type: 
  Country: None (occurrence: None)
  Receive Date: 20070116
  Receipt Date: 20060920
  Transmission Date: 20070707
  Serious: No
  Sender: FDA-Public Use
  Company Number: 2006SP003363

PATIENT
  Age: 55 Year
  Sex: Female
  Weight: 68.0396 kg

DRUGS (8)
  1. LUNESTA [Suspect]
     Dosage: 2 MG; HS; ORAL
     Route: 048
     Dates: start: 20060914, end: 20060918
  2. HALCION [Concomitant]
  3. MAXZIDE [Concomitant]
  4. ESTROGENS [Concomitant]
  5. PYRIDIUM [Concomitant]
  6. AMITRIPTYLINE HCL [Concomitant]
  7. DICYCLOMINE [Concomitant]
  8. SYNTHROID [Concomitant]

REACTIONS (1)
  - INITIAL INSOMNIA [None]
